FAERS Safety Report 7831210-9 (Version None)
Quarter: 2011Q4

REPORT INFORMATION
  Report Type: 
  Country: None (occurrence: None)
  Receive Date: 20111021
  Receipt Date: 20111013
  Transmission Date: 20120403
  Serious: Yes (Death, Hospitalization)
  Sender: FDA-Public Use
  Company Number: IT-MPIJNJ-2011-04450

PATIENT

DRUGS (5)
  1. ACYCLOVIR [Concomitant]
     Indication: HERPES ZOSTER
     Dosage: 400 MG, UNK
     Route: 065
  2. VELCADE [Suspect]
     Indication: MULTIPLE MYELOMA
     Dosage: 1.8 MG, UNK
     Dates: start: 20110906
  3. ZOLOFT [Concomitant]
     Indication: DEPRESSION
     Route: 065
  4. OMEPRAZOLE [Concomitant]
     Indication: GASTROINTESTINAL DISORDER
     Dosage: 20 MG, UNK
     Route: 065
  5. DURAGESIC-100 [Concomitant]
     Indication: PAIN
     Dosage: 100 MG, UNK
     Route: 065

REACTIONS (1)
  - HYPOXIA [None]
